FAERS Safety Report 19377409 (Version 1)
Quarter: 2021Q2

REPORT INFORMATION
  Report Type: Spontaneous
  Country: JP (occurrence: JP)
  Receive Date: 20210604
  Receipt Date: 20210604
  Transmission Date: 20210717
  Serious: Yes (Other)
  Sender: FDA-Public Use
  Company Number: JP-PFIZER INC-2020168689

PATIENT
  Sex: Female

DRUGS (2)
  1. KAKKONTO [CINNAMOMUM CASSIA BARK;EPHEDRA SPP. HERB;GLYCYRRHIZA SPP. RO [Concomitant]
     Active Substance: HERBALS
  2. CADUET [Suspect]
     Active Substance: AMLODIPINE BESYLATE\ATORVASTATIN CALCIUM
     Dosage: UNK
     Route: 048
     Dates: start: 202003, end: 202004

REACTIONS (5)
  - Rash [Recovering/Resolving]
  - Dermatitis [Unknown]
  - Retinal haemorrhage [Unknown]
  - Drug eruption [Recovering/Resolving]
  - Lymphadenopathy [Unknown]

NARRATIVE: CASE EVENT DATE: 20200422
